FAERS Safety Report 20931535 (Version 1)
Quarter: 2022Q2

REPORT INFORMATION
  Report Type: Spontaneous
  Country: US (occurrence: US)
  Receive Date: 20220608
  Receipt Date: 20220608
  Transmission Date: 20220720
  Serious: Yes (Hospitalization)
  Sender: FDA-Public Use
  Company Number: US-BSC-2022000084

PATIENT
  Age: 66 Year
  Sex: Male

DRUGS (2)
  1. VARITHENA [Suspect]
     Active Substance: POLIDOCANOL
     Indication: Varicose vein
     Dates: start: 20220420
  2. VARITHENA [Suspect]
     Active Substance: POLIDOCANOL
     Indication: Varicose vein
     Dates: start: 20220505

REACTIONS (2)
  - Pulmonary embolism [Unknown]
  - Deep vein thrombosis [Unknown]

NARRATIVE: CASE EVENT DATE: 20220526
